FAERS Safety Report 7865328-1 (Version None)
Quarter: 2011Q4

REPORT INFORMATION
  Report Type: 
  Country: None (occurrence: None)
  Receive Date: 20111028
  Receipt Date: 20101123
  Transmission Date: 20120403
  Serious: No
  Sender: FDA-Public Use
  Company Number: US-GLAXOSMITHKLINE-A0894702A

PATIENT
  Age: 64 Year
  Sex: Male

DRUGS (2)
  1. ADVAIR DISKUS 100/50 [Suspect]
     Indication: PNEUMONIA
     Dosage: 1PUFF PER DAY
     Route: 055
     Dates: start: 20100926
  2. NO CONCURRENT MEDICATION [Concomitant]

REACTIONS (4)
  - LACRIMATION INCREASED [None]
  - EYE PRURITUS [None]
  - EYELID FUNCTION DISORDER [None]
  - EYE IRRITATION [None]
